FAERS Safety Report 9992396 (Version 19)
Quarter: 2016Q4

REPORT INFORMATION
  Report Type: Spontaneous
  Country: US (occurrence: US)
  Receive Date: 20140310
  Receipt Date: 20161129
  Transmission Date: 20170207
  Serious: Yes (Hospitalization, Other)
  Sender: FDA-Public Use
  Company Number: US-GLAXOSMITHKLINE-A1064099A

PATIENT
  Age: 75 Year
  Sex: Female

DRUGS (21)
  1. FLOLAN [Suspect]
     Active Substance: EPOPROSTENOL SODIUM
     Dosage: 16.5 NG/KG/MIN CONTINUOUSLY
  2. FLOLAN [Suspect]
     Active Substance: EPOPROSTENOL SODIUM
     Dosage: 16.5 DF, CO
     Dates: start: 20131031
  3. FLOLAN [Suspect]
     Active Substance: EPOPROSTENOL SODIUM
     Dosage: 16.5 NG/KG/MIN
     Route: 042
  4. FLOLAN [Suspect]
     Active Substance: EPOPROSTENOL SODIUM
     Indication: POLYARTHRITIS
     Dosage: 10.5 NG/KG/MIN CO
     Route: 042
     Dates: start: 20131031
  5. FLOLAN [Suspect]
     Active Substance: EPOPROSTENOL SODIUM
     Dosage: 16.5 NG/KG/MIN CO, VIAL STRENGTH: 1.5 MG
     Route: 042
  6. FLOLAN [Suspect]
     Active Substance: EPOPROSTENOL SODIUM
     Dosage: UNK
     Dates: start: 20131031
  7. FLOLAN [Suspect]
     Active Substance: EPOPROSTENOL SODIUM
     Dosage: UNK, CO
     Dates: start: 20131031
  8. FLOLAN [Suspect]
     Active Substance: EPOPROSTENOL SODIUM
     Indication: PULMONARY HYPERTENSION
  9. REVATIO [Concomitant]
     Active Substance: SILDENAFIL CITRATE
  10. FLOLAN [Suspect]
     Active Substance: EPOPROSTENOL SODIUM
     Dosage: 16.5 NG/KG/MIN, CO
     Route: 042
  11. FLOLAN [Suspect]
     Active Substance: EPOPROSTENOL SODIUM
     Dosage: 16.5 NG/KG/MIN, CO
     Route: 042
  12. FLOLAN [Suspect]
     Active Substance: EPOPROSTENOL SODIUM
     Dosage: 22 DF, CO
  13. FLOLAN [Suspect]
     Active Substance: EPOPROSTENOL SODIUM
     Dosage: 16.5 NG/KG/MIN CONTINUOUSLY
  14. FLOLAN [Suspect]
     Active Substance: EPOPROSTENOL SODIUM
     Dosage: 16.5 NG/KG/MIN CONTINUOUSLY
     Dates: start: 20131031
  15. FLOLAN [Suspect]
     Active Substance: EPOPROSTENOL SODIUM
     Dosage: 16.5 NG/KG/MIN, CO
     Dates: start: 20131031
  16. FLOLAN [Suspect]
     Active Substance: EPOPROSTENOL SODIUM
     Indication: PULMONARY HYPERTENSION
  17. FLOLAN [Suspect]
     Active Substance: EPOPROSTENOL SODIUM
     Indication: COR PULMONALE CHRONIC
     Dosage: 9.5 NG/KG/MINUTE
     Route: 042
     Dates: start: 20131031
  18. FLOLAN [Suspect]
     Active Substance: EPOPROSTENOL SODIUM
     Indication: PULMONARY HYPERTENSION
     Dosage: 15.5 NG/KG/MIN
     Dates: start: 20131101
  19. AMLODIPINE [Concomitant]
     Active Substance: AMLODIPINE BESYLATE
  20. FLOLAN [Suspect]
     Active Substance: EPOPROSTENOL SODIUM
     Dosage: 16.5 NG/KG/MIN CO, VIAL STRENGTH: 1.5 MG
     Route: 042
  21. SILDENAFIL CITRATE. [Concomitant]
     Active Substance: SILDENAFIL CITRATE

REACTIONS (22)
  - Oesophageal dilation procedure [Unknown]
  - Gastric disorder [Unknown]
  - Device related infection [Unknown]
  - Emergency care examination [Unknown]
  - Haematoma [Unknown]
  - Complication associated with device [Unknown]
  - Cough [Unknown]
  - Catheter site erythema [Unknown]
  - Diarrhoea [Unknown]
  - Central venous catheterisation [Recovered/Resolved]
  - Central venous catheterisation [Unknown]
  - Fall [Unknown]
  - Device dislocation [Unknown]
  - Hospitalisation [Recovered/Resolved]
  - Haemorrhoids [Unknown]
  - Catheter site haemorrhage [Unknown]
  - Head injury [Unknown]
  - Increased upper airway secretion [Unknown]
  - Catheter placement [Unknown]
  - Toe operation [Unknown]
  - Dyspnoea exertional [Recovered/Resolved]
  - Gastrooesophageal reflux disease [Unknown]

NARRATIVE: CASE EVENT DATE: 201408
